FAERS Safety Report 6531744-3 (Version None)
Quarter: 2010Q1

REPORT INFORMATION
  Report Type: 
  Country: None (occurrence: None)
  Receive Date: 20100108
  Receipt Date: 20100105
  Transmission Date: 20100710
  Serious: Yes (Other)
  Sender: FDA-Public Use
  Company Number: CA-JNJFOC-20100101596

PATIENT
  Sex: Female
  Weight: 63.5 kg

DRUGS (5)
  1. REMICADE [Suspect]
     Indication: CROHN'S DISEASE
     Route: 042
     Dates: start: 20050101
  2. IMURAN [Concomitant]
  3. MULTIPLE VITAMIN [Concomitant]
  4. VITAMIN B-12 [Concomitant]
     Route: 030
  5. VITAMIN B-12 [Concomitant]
     Route: 048

REACTIONS (1)
  - MALIGNANT MELANOMA [None]
